FAERS Safety Report 8323272-X (Version None)
Quarter: 2012Q2

REPORT INFORMATION
  Report Type: 
  Country: None (occurrence: None)
  Receive Date: 20120430
  Receipt Date: 20120423
  Transmission Date: 20120825
  Serious: Yes (Hospitalization)
  Sender: FDA-Public Use
  Company Number: PHHO2012ES005436

PATIENT
  Sex: Female
  Weight: 75.5 kg

DRUGS (5)
  1. BLINDED GP2013 [Suspect]
     Indication: RHEUMATOID ARTHRITIS
     Dosage: CODE NOT BROKEN
     Route: 042
     Dates: start: 20110816, end: 20110830
  2. METHOTREXATE [Suspect]
     Dosage: 20 MG, EACH WEEK
     Route: 058
     Dates: start: 20110801, end: 20110403
  3. DEZACOR [Suspect]
     Dosage: 6 MG, QD
     Dates: start: 20110801
  4. BLINDED NO TREATMENT RECEIVED [Suspect]
     Indication: RHEUMATOID ARTHRITIS
     Dosage: CODE NOT BROKEN
     Route: 042
     Dates: start: 20110816, end: 20110830
  5. BLINDED MABTHERA [Suspect]
     Indication: RHEUMATOID ARTHRITIS
     Dosage: CODE NOT BROKEN
     Route: 042
     Dates: start: 20110816, end: 20110830

REACTIONS (1)
  - PNEUMONIA PRIMARY ATYPICAL [None]
